FAERS Safety Report 4822749-9 (Version None)
Quarter: 2005Q4

REPORT INFORMATION
  Report Type: 
  Country: None (occurrence: None)
  Receive Date: 20051107
  Receipt Date: 20051107
  Transmission Date: 20060501
  Serious: Yes (Other)
  Sender: FDA-Public Use
  Company Number: None

PATIENT
  Age: 38 Year
  Sex: Female
  Weight: 70.3075 kg

DRUGS (3)
  1. TOPAMAX [Suspect]
     Indication: BURNING SENSATION
     Dosage: 25MG 4 TIMES A DAY PO
     Route: 048
     Dates: start: 20040101, end: 20050901
  2. TOPAMAX [Suspect]
     Indication: NEUROPATHY PERIPHERAL
     Dosage: 25MG 4 TIMES A DAY PO
     Route: 048
     Dates: start: 20040101, end: 20050901
  3. TOPAMAX [Suspect]
     Indication: PAIN
     Dosage: 25MG 4 TIMES A DAY PO
     Route: 048
     Dates: start: 20040101, end: 20050901

REACTIONS (1)
  - EYE PAIN [None]
